FAERS Safety Report 6271906-6 (Version None)
Quarter: 2009Q3

REPORT INFORMATION
  Report Type: 
  Country: None (occurrence: None)
  Receive Date: 20090717
  Receipt Date: 20090706
  Transmission Date: 20100115
  Serious: Yes (Other)
  Sender: FDA-Public Use
  Company Number: IN-ASTRAZENECA-2009SE04102

PATIENT
  Age: 70 Year
  Sex: Male

DRUGS (2)
  1. XYLOCAINE W/ EPINEPHRINE [Suspect]
     Indication: LOCAL ANAESTHESIA
  2. SENSORCAINE [Suspect]
     Indication: LOCAL ANAESTHESIA

REACTIONS (4)
  - CELLULITIS [None]
  - CONJUNCTIVAL OEDEMA [None]
  - EYELID OEDEMA [None]
  - PAIN [None]
